FAERS Safety Report 6011591-1 (Version None)
Quarter: 2008Q4

REPORT INFORMATION
  Report Type: 
  Country: None (occurrence: None)
  Receive Date: 20081218
  Receipt Date: 20080918
  Transmission Date: 20090506
  Serious: No
  Sender: FDA-Public Use
  Company Number: US-ASTRAZENECA-2008UW19384

PATIENT
  Age: 87 Year
  Sex: Female
  Weight: 61.2 kg

DRUGS (4)
  1. CRESTOR [Suspect]
     Indication: BLOOD CHOLESTEROL INCREASED
     Route: 048
     Dates: start: 20080601
  2. DIAVAN [Concomitant]
  3. NORVASC [Concomitant]
  4. THYROID MEDICATION [Concomitant]

REACTIONS (3)
  - DRY MOUTH [None]
  - DRY THROAT [None]
  - LIP DRY [None]
